FAERS Safety Report 7747843-4 (Version None)
Quarter: 2011Q3

REPORT INFORMATION
  Report Type: 
  Country: None (occurrence: None)
  Receive Date: 20110913
  Receipt Date: 20110906
  Transmission Date: 20111222
  Serious: Yes (Other)
  Sender: FDA-Public Use
  Company Number: PHHY2011FR79595

PATIENT
  Age: 80 Year
  Sex: Female

DRUGS (4)
  1. METHYLPREDNISOLONE [Suspect]
     Indication: RHEUMATOID ARTHRITIS
     Dosage: 150 MG, UNK
  2. PREDNISONE [Suspect]
     Indication: RHEUMATOID ARTHRITIS
     Dosage: 20 MG, PER DAY
     Route: 048
  3. TOCILIZUMAB [Suspect]
     Indication: RHEUMATOID ARTHRITIS
     Dosage: 8 MG/KG EVERY 4WEEKS
  4. METHOTREXATE [Concomitant]
     Dosage: 15 MG, UNK

REACTIONS (6)
  - ACARODERMATITIS [None]
  - PRURITUS [None]
  - HYPERKERATOSIS [None]
  - DERMATITIS EXFOLIATIVE [None]
  - SKIN EXFOLIATION [None]
  - PNEUMONIA [None]
